FAERS Safety Report 8519258-2 (Version None)
Quarter: 2012Q3

REPORT INFORMATION
  Report Type: 
  Country: None (occurrence: None)
  Receive Date: 20120718
  Receipt Date: 20120712
  Transmission Date: 20120928
  Serious: Yes (Other)
  Sender: FDA-Public Use
  Company Number: US-MPIJNJ-2012-04919

PATIENT
  Age: 45 Year
  Sex: Female

DRUGS (2)
  1. DEXAMETHASONE [Suspect]
     Dosage: UNK
  2. VELCADE [Suspect]
     Indication: AMYLOIDOSIS
     Dosage: UNK

REACTIONS (1)
  - CYTOMEGALOVIRUS COLITIS [None]
